FAERS Safety Report 16414492 (Version 3)
Quarter: 2019Q3

REPORT INFORMATION
  Report Type: Spontaneous
  Country: ES (occurrence: ES)
  Receive Date: 20190611
  Receipt Date: 20190911
  Transmission Date: 20191004
  Serious: Yes (Other)
  Sender: FDA-Public Use
  Company Number: ES-ASTRAZENECA-2019SE83768

PATIENT
  Age: 3 Month
  Sex: Female
  Weight: 6.6 kg

DRUGS (4)
  1. OP2455 (OMEPRAZOLE) [Suspect]
     Active Substance: OMEPRAZOLE
     Indication: INFANTILE SPITTING UP
     Route: 048
     Dates: start: 20190110, end: 20190301
  2. DELTIUS [Concomitant]
     Active Substance: CHOLECALCIFEROL
     Indication: PROPHYLAXIS
     Route: 048
     Dates: start: 20181228
  3. MINOXIDIL. [Suspect]
     Active Substance: MINOXIDIL
     Route: 048
     Dates: start: 20190301, end: 20190330
  4. OP2455 (OMEPRAZOLE) [Suspect]
     Active Substance: OMEPRAZOLE
     Indication: INFANTILE SPITTING UP
     Route: 048
     Dates: start: 20190110, end: 20190330

REACTIONS (2)
  - Product formulation issue [Recovered/Resolved]
  - Hypertrichosis [Recovering/Resolving]

NARRATIVE: CASE EVENT DATE: 20190301
